FAERS Safety Report 20855590 (Version 1)
Quarter: 2022Q2

REPORT INFORMATION
  Report Type: Spontaneous
  Country: BE (occurrence: BE)
  Receive Date: 20220520
  Receipt Date: 20220520
  Transmission Date: 20220721
  Serious: Yes (Other)
  Sender: FDA-Public Use
  Company Number: None

PATIENT
  Age: 74 Year
  Sex: Male
  Weight: 78.5 kg

DRUGS (13)
  1. DICLOFENAC [Suspect]
     Active Substance: DICLOFENAC
     Indication: Pain
     Route: 065
     Dates: start: 20210921, end: 20211006
  2. CYANOCOBALAMIN\PYRIDOXINE\RIBOFLAVIN\THIAMINE [Concomitant]
     Active Substance: CYANOCOBALAMIN\PYRIDOXINE\RIBOFLAVIN\THIAMINE
     Dosage: 1 DOSAGE FORMS DAILY; BEFACT FORTE 1 TABLET 1X/DAY (PO)
     Route: 048
  3. METFORMIN HYDROCHLORIDE [Concomitant]
     Active Substance: METFORMIN HYDROCHLORIDE
     Dosage: 2 DOSAGE FORMS DAILY; METFORMINE MYLAN 850 MG 1 TABLET 2X/DAY (PO)
     Route: 048
  4. PERINDOPRIL [Concomitant]
     Active Substance: PERINDOPRIL
     Dosage: .5 DOSAGE FORMS DAILY; COVERSYL 5 MG HALVE TABLET 1X/DAY (PO)
     Route: 048
  5. PANTOMED [Concomitant]
     Dosage: 2 DOSAGE FORMS DAILY; PANTOMED 40 MG 1 TABLET 2X/DAY (PO)
     Route: 048
  6. ENOXAPARIN SODIUM [Concomitant]
     Active Substance: ENOXAPARIN SODIUM
     Dosage: 1 DOSAGE FORMS DAILY; SPRAY  , CLEXANE 40 MG 1 SPRAY 1X/DAY (SC)
     Route: 058
  7. FENOFIBRATE [Concomitant]
     Active Substance: FENOFIBRATE
     Dosage: 1 DOSAGE FORMS DAILY; LIPANTHYL NANO 145 MG 1 TABLET 1X/DAY (PO) , STRENGTH : 145 MG , LIPANTHYL NAN
     Route: 048
  8. ALLOPURINOL [Concomitant]
     Active Substance: ALLOPURINOL
     Dosage: 1 DOSAGE FORMS DAILY; ZYLORIC 100 MG 1 TABLET 1X/DAY (PO) , STRENGTH : 100 MG
     Route: 048
  9. BISOPROLOL [Concomitant]
     Active Substance: BISOPROLOL
     Dosage: 1 DOSAGE FORMS DAILY; BISOPROLOL EG 5 MG 1 TABLET 1X / DAY (PO) , STRENGTH : 5 MG
     Route: 048
  10. ESCITALOPRAM OXALATE [Concomitant]
     Active Substance: ESCITALOPRAM OXALATE
     Dosage: STRENGTH : 10 MG
  11. NEUROBION [Concomitant]
     Active Substance: CYANOCOBALAMIN\PYRIDOXINE\THIAMINE
     Dosage: 1 DOSAGE FORMS DAILY; AMPOULES , NEUROBION 1 AMP 1X/DAY
     Route: 030
     Dates: start: 20211002
  12. ROSUVASTATINE EG [Concomitant]
     Dosage: 1 DOSAGE FORMS DAILY; ROSUVASTATINE EG 5 MG 1 TABLET 1X/DAY (PO) , STRENGTH : 5 MG
     Route: 048
  13. XANAX [Concomitant]
     Active Substance: ALPRAZOLAM
     Dosage: 1 DOSAGE FORMS DAILY; XANAX 0,5 MG 1 TABLET 1X/DAY (PO) , STRENGTH : 0.5 MG
     Route: 048

REACTIONS (2)
  - Burns second degree [Unknown]
  - Application site burn [Unknown]

NARRATIVE: CASE EVENT DATE: 20211005
